FAERS Safety Report 9083916 (Version 2)
Quarter: 2013Q1

REPORT INFORMATION
  Report Type: Report from Study
  Country: GB (occurrence: GB)
  Receive Date: 20130130
  Receipt Date: 20130311
  Transmission Date: 20140127
  Serious: Yes (Death, Hospitalization, Other)
  Sender: FDA-Public Use
  Company Number: GB-SANOFI-AVENTIS-2012SA087077

PATIENT
  Age: 73 Year
  Sex: Male
  Weight: 69 kg

DRUGS (9)
  1. TAXOTERE [Suspect]
     Indication: NON-SMALL CELL LUNG CANCER STAGE IV
     Route: 041
     Dates: start: 20120802, end: 20120802
  2. TAXOTERE [Suspect]
     Indication: NON-SMALL CELL LUNG CANCER STAGE IV
     Route: 041
     Dates: start: 20121004, end: 20121004
  3. BLINDED THERAPY [Suspect]
     Indication: NON-SMALL CELL LUNG CANCER STAGE IV
     Route: 041
     Dates: start: 20120802, end: 20120802
  4. BLINDED THERAPY [Suspect]
     Indication: NON-SMALL CELL LUNG CANCER STAGE IV
     Route: 041
     Dates: start: 20121004, end: 20121004
  5. LANSOPRAZOLE [Concomitant]
     Indication: PROPHYLAXIS
     Dates: start: 201008
  6. ORAMORPH [Concomitant]
     Indication: COUGH
     Dates: start: 20120706
  7. DEXAMETHASONE [Concomitant]
     Indication: COUGH
     Dates: start: 20120706
  8. DEXAMETHASONE [Concomitant]
     Indication: APPETITE DISORDER
     Dates: start: 20120706
  9. CLEXANE [Concomitant]
     Indication: PULMONARY EMBOLISM
     Dates: start: 20121019

REACTIONS (3)
  - Disease progression [Fatal]
  - Pleural effusion [Recovered/Resolved with Sequelae]
  - Pulmonary embolism [Not Recovered/Not Resolved]
